FAERS Safety Report 8914209 (Version 2)
Quarter: 2012Q4

REPORT INFORMATION
  Report Type: 
  Country: MX (occurrence: MX)
  Receive Date: 20121116
  Receipt Date: 20121205
  Transmission Date: 20130627
  Serious: Yes (Hospitalization)
  Sender: FDA-Public Use
  Company Number: MX-ELI_LILLY_AND_COMPANY-MX201211005028

PATIENT
  Age: 38 Year
  Sex: Male

DRUGS (2)
  1. CIALIS [Suspect]
     Dosage: 20 mg, unknown
  2. CIALIS [Suspect]
     Dosage: 5 mg, other

REACTIONS (2)
  - Myalgia [Recovered/Resolved]
  - Vision blurred [Not Recovered/Not Resolved]
